FAERS Safety Report 9745966 (Version 1)
Quarter: 2013Q4

REPORT INFORMATION
  Report Type: Spontaneous
  Country: US (occurrence: US)
  Receive Date: 20131211
  Receipt Date: 20131211
  Transmission Date: 20140711
  Serious: Yes (Other)
  Sender: FDA-Public Use
  Company Number: US-PFIZER INC-2013349351

PATIENT
  Sex: 0

DRUGS (3)
  1. XELJANZ [Suspect]
     Dosage: UNK
  2. HUMIRA [Suspect]
     Dosage: UNK
  3. REMICADE [Suspect]
     Dosage: UNK

REACTIONS (2)
  - Uveitis [Unknown]
  - Scleritis [Unknown]
